FAERS Safety Report 17987564 (Version 1)
Quarter: 2020Q3

REPORT INFORMATION
  Report Type: Spontaneous
  Country: US (occurrence: US)
  Receive Date: 20200706
  Receipt Date: 20200706
  Transmission Date: 20201103
  Serious: Yes (Hospitalization)
  Sender: FDA-Public Use
  Company Number: None

PATIENT
  Age: 72 Year
  Sex: Female

DRUGS (14)
  1. AMBRISENTAN 10MG TABLETS 30/BO: 10MG [Suspect]
     Active Substance: AMBRISENTAN
     Indication: PULMONARY ARTERIAL HYPERTENSION
     Route: 048
     Dates: start: 201602
  2. SILDENAFIL. [Concomitant]
     Active Substance: SILDENAFIL
  3. DICLOFENAC SODIUM GEL [Concomitant]
     Active Substance: DICLOFENAC SODIUM
  4. MAGNESIUM OXIDE. [Concomitant]
     Active Substance: MAGNESIUM OXIDE
  5. ENOXAPARIN [Concomitant]
     Active Substance: ENOXAPARIN
  6. MVI [Concomitant]
     Active Substance: VITAMINS
  7. POTASSIUM CHLORIDE. [Concomitant]
     Active Substance: POTASSIUM CHLORIDE
  8. ASPIRIN. [Concomitant]
     Active Substance: ASPIRIN
  9. CALCIUM CARBONATE?VIT D3 [Concomitant]
  10. PANTOPRAZOLE [Concomitant]
     Active Substance: PANTOPRAZOLE
  11. ROSUVASTATIN. [Concomitant]
     Active Substance: ROSUVASTATIN
  12. FERROUS SULFATE. [Concomitant]
     Active Substance: FERROUS SULFATE
  13. FLONASE [Concomitant]
     Active Substance: FLUTICASONE PROPIONATE
  14. FUROSDMIE [Concomitant]

REACTIONS (5)
  - Dyspnoea [None]
  - Cardiac failure congestive [None]
  - Respiratory failure [None]
  - Pneumonia [None]
  - Pulmonary oedema [None]

NARRATIVE: CASE EVENT DATE: 20200611
